FAERS Safety Report 9274690 (Version 1)
Quarter: 2013Q4

REPORT INFORMATION
  Report Type: Spontaneous
  Country: US (occurrence: None)
  Receive Date: 20130430
  Receipt Date: 20130430
  Transmission Date: 20140711
  Serious: Yes (Hospitalization)
  Sender: FDA-Public Use
  Company Number: None

PATIENT
  Age: 59 Year
  Sex: Female
  Weight: 116.5 kg

DRUGS (11)
  1. EVEROLIMUS [Suspect]
     Indication: BREAST CANCER
     Dosage: 5MG ORAL DAILY
     Route: 048
     Dates: start: 20130122, end: 20130419
  2. IMODIUM [Concomitant]
  3. PROMETHAZINE [Concomitant]
  4. ONDANSETRON HCL [Concomitant]
  5. HYDROCODONE-ACETAMINOPHEN [Concomitant]
  6. DIOVAN [Concomitant]
  7. AMLODIPINE [Concomitant]
  8. MAGNESIUM CHLORIDE [Concomitant]
  9. KLOR-CON [Concomitant]
  10. HYDROXYZINE [Concomitant]
  11. DEXAMETHASONE [Concomitant]

REACTIONS (1)
  - Diarrhoea [None]
